FAERS Safety Report 17881851 (Version 1)
Quarter: 2020Q2

REPORT INFORMATION
  Report Type: Report from Study
  Country: US (occurrence: US)
  Receive Date: 20200610
  Receipt Date: 20200610
  Transmission Date: 20200714
  Serious: Yes (Congenital Anomaly, Other)
  Sender: FDA-Public Use
  Company Number: US-UCBSA-2020022843

PATIENT
  Age: 0 Year
  Sex: Male

DRUGS (21)
  1. OMEPRAZOLE. [Concomitant]
     Active Substance: OMEPRAZOLE
     Dosage: UNK
     Route: 064
     Dates: start: 20190909, end: 20191116
  2. FIORICET [Concomitant]
     Active Substance: ACETAMINOPHEN\BUTALBITAL\CAFFEINE
     Indication: MIGRAINE
     Dosage: UNK
     Route: 064
     Dates: start: 20190517, end: 20190930
  3. FLU VACCINE VII [Concomitant]
     Active Substance: INFLUENZA VIRUS VACCINE
     Indication: INFLUENZA IMMUNISATION
     Dosage: UNK
     Route: 064
     Dates: start: 20190823, end: 20190823
  4. PRENATAL VITAMINS [ASCORBIC ACID;BETACAROTENE;CALCIUM SULFATE;COLECALC [Concomitant]
     Indication: PRODUCT USED FOR UNKNOWN INDICATION
     Dosage: UNK
     Route: 064
     Dates: start: 20180508, end: 20190503
  5. PRENATAL VITAMINS [ASCORBIC ACID;BETACAROTENE;CALCIUM SULFATE;COLECALC [Concomitant]
     Dosage: UNK
     Route: 064
     Dates: start: 2019, end: 20191116
  6. FOLIC ACID. [Concomitant]
     Active Substance: FOLIC ACID
     Indication: PRODUCT USED FOR UNKNOWN INDICATION
     Dosage: UNK
     Route: 064
     Dates: start: 20190214, end: 20190830
  7. METOCLOPRAMIDE. [Concomitant]
     Active Substance: METOCLOPRAMIDE
     Indication: MIGRAINE
     Dosage: 10705201 UNK
     Route: 064
  8. TDAP [Concomitant]
     Active Substance: TETANUS TOXOID, REDUCED DIPHTHERIA TOXOID AND ACELLULAR PERTUSSIS VACCINE ADSORBED, TDAP
     Indication: PRODUCT USED FOR UNKNOWN INDICATION
     Dosage: UNK
     Route: 064
     Dates: start: 20190903, end: 20190903
  9. ZOFRAN [Concomitant]
     Active Substance: ONDANSETRON HYDROCHLORIDE
     Indication: NAUSEA
     Dosage: UNK
     Route: 064
     Dates: start: 20190510, end: 20190516
  10. CERTOLIZUMAB PEGOL RA [Suspect]
     Active Substance: CERTOLIZUMAB PEGOL
     Indication: PSORIATIC ARTHROPATHY
     Dosage: 200 MILLIGRAM, 2X/MONTH
     Route: 064
     Dates: start: 20190222, end: 20190618
  11. ACYCLOVIR [ACICLOVIR] [Concomitant]
     Active Substance: ACYCLOVIR
     Indication: ORAL HERPES
     Dosage: UNK
     Route: 064
     Dates: start: 20190718, end: 20190929
  12. METOCLOPRAMIDE. [Concomitant]
     Active Substance: METOCLOPRAMIDE
     Indication: MORNING SICKNESS
  13. VITAMIN B COMPLEX [Concomitant]
     Active Substance: CYANOCOBALAMIN\DEXPANTHENOL\NIACINAMIDE\PYRIDOXINE HYDROCHLORIDE\RIBOFLAVIN 5^-PHOSPHATE SODIUM\THIAMINE HYDROCHLORIDE\VITAMIN B COMPLEX
     Indication: PRODUCT USED FOR UNKNOWN INDICATION
     Dosage: UNK
     Route: 064
     Dates: start: 20190214, end: 20191015
  14. CERTOLIZUMAB PEGOL RA [Suspect]
     Active Substance: CERTOLIZUMAB PEGOL
     Dosage: 200 MILLIGRAM, THREE TIMES A MONTH/ EVERY 10 DAYS
     Route: 064
     Dates: start: 20190619, end: 20191116
  15. FEVERFEW [TANACETUM PARTHENIUM] [Concomitant]
     Active Substance: FEVERFEW\TANACETUM PARTHENIUM
     Indication: PROPHYLAXIS
     Dosage: UNK
     Route: 064
     Dates: start: 20190214, end: 20191015
  16. OMEPRAZOLE. [Concomitant]
     Active Substance: OMEPRAZOLE
     Indication: DYSPEPSIA
     Dosage: UNK
     Route: 064
     Dates: start: 20190607, end: 20190906
  17. VITAMIN B6 [Concomitant]
     Active Substance: PYRIDOXINE HYDROCHLORIDE
     Indication: MORNING SICKNESS
     Dosage: UNK
     Route: 064
     Dates: start: 20190322, end: 20190419
  18. VITAMIN D [ERGOCALCIFEROL] [Concomitant]
     Active Substance: ERGOCALCIFEROL
     Indication: PRODUCT USED FOR UNKNOWN INDICATION
     Dosage: UNK
     Route: 064
     Dates: start: 20190214, end: 20191116
  19. TYLENOL EXTRA STRENGTH [Concomitant]
     Active Substance: ACETAMINOPHEN
     Indication: MIGRAINE
     Dosage: 10042019 UNK
     Route: 064
     Dates: start: 20190410, end: 20190410
  20. DOXYLAMINE [Concomitant]
     Active Substance: DOXYLAMINE
     Indication: MORNING SICKNESS
     Dosage: UNK
     Route: 064
     Dates: start: 20190322, end: 20190405
  21. MAGNESIUM [Concomitant]
     Active Substance: MAGNESIUM
     Indication: PROPHYLAXIS
     Dosage: UNK
     Route: 064
     Dates: start: 20190214, end: 20191015

REACTIONS (3)
  - Maternal exposure before pregnancy [Unknown]
  - Pneumonia respiratory syncytial viral [Recovered/Resolved]
  - Hypospadias [Unknown]

NARRATIVE: CASE EVENT DATE: 20190222
